FAERS Safety Report 6432572-X (Version None)
Quarter: 2009Q4

REPORT INFORMATION
  Report Type: 
  Country: None (occurrence: None)
  Receive Date: 20091109
  Receipt Date: 20091027
  Transmission Date: 20100525
  Serious: Yes (Other)
  Sender: FDA-Public Use
  Company Number: BR-ELI_LILLY_AND_COMPANY-BR200910007017

PATIENT
  Age: 81 Year
  Sex: Male

DRUGS (2)
  1. CYMBALTA [Suspect]
     Dosage: 60 MG, EACH MORNING
     Route: 048
     Dates: start: 20090901
  2. ESCITALOPRAM [Concomitant]
     Dosage: UNK, UNKNOWN
     Route: 065

REACTIONS (6)
  - AGGRESSION [None]
  - AGITATION [None]
  - DELIRIUM [None]
  - INFECTION [None]
  - INSOMNIA [None]
  - SOMNOLENCE [None]
